FAERS Safety Report 9257441 (Version 2)
Quarter: 2014Q1

REPORT INFORMATION
  Report Type: Spontaneous
  Country: US (occurrence: None)
  Receive Date: 20121212
  Receipt Date: 20130314
  Transmission Date: 20141002
  Serious: No
  Sender: FDA-Public Use
  Company Number: 1209USA005709

PATIENT
  Age: 48 Year
  Sex: Female

DRUGS (3)
  1. PEG-INTRON [Suspect]
     Indication: HEPATITIS C
     Dates: start: 20120828
  2. REBETOL [Suspect]
     Indication: HEPATITIS C
     Dates: start: 20120828
  3. VICTRELIS [Suspect]
     Indication: HEPATITIS C
     Dates: start: 20120925

REACTIONS (31)
  - Anger [None]
  - Memory impairment [None]
  - Influenza [None]
  - Skin lesion [None]
  - Pruritus [None]
  - Anorectal discomfort [None]
  - Anal pruritus [None]
  - Headache [None]
  - Asthenia [None]
  - Diarrhoea [None]
  - Fatigue [None]
  - Dysgeusia [None]
  - Nausea [None]
  - Drug dose omission [None]
  - Decreased appetite [None]
  - Dysgeusia [None]
  - Diarrhoea [None]
  - Gastrointestinal disorder [None]
  - Nervous system disorder [None]
  - Chills [None]
  - Pyrexia [None]
  - Insomnia [None]
  - Weight decreased [None]
  - Rash [None]
  - Dry skin [None]
  - Pruritus [None]
  - Alopecia [None]
  - Hair texture abnormal [None]
  - Eye pruritus [None]
  - Dyspnoea [None]
  - Depression [None]
